FAERS Safety Report 8895423 (Version 1)
Quarter: 2012Q4

REPORT INFORMATION
  Report Type: 
  Country: JP (occurrence: JP)
  Receive Date: 20121107
  Receipt Date: 20121107
  Transmission Date: 20130627
  Serious: Yes (Death, Other)
  Sender: FDA-Public Use
  Company Number: PHHY2012JP101847

PATIENT
  Age: 63 Year
  Sex: Male

DRUGS (6)
  1. MEROPENEM [Suspect]
     Indication: FEBRILE NEUTROPENIA
     Dosage: 1 g, TID
  2. PIPERACILLIN+TAZOBACTAM [Suspect]
     Indication: FEBRILE NEUTROPENIA
     Dosage: 4.5 g, TID
  3. CYTARABINE [Concomitant]
  4. DAUNORUBICIN [Concomitant]
  5. MITOXANTRONE [Concomitant]
  6. ETOPOSIDE [Concomitant]

REACTIONS (12)
  - Pneumonia bacterial [Fatal]
  - Stenotrophomonas infection [Fatal]
  - Pulmonary haemorrhage [Fatal]
  - Chest discomfort [Fatal]
  - Cough [Fatal]
  - Haemoptysis [Fatal]
  - Lung infiltration [Fatal]
  - Hypoxia [Fatal]
  - Bronchial haemorrhage [Fatal]
  - Shock haemorrhagic [Unknown]
  - Liver abscess [Unknown]
  - Haemorrhoids [Unknown]
